FAERS Safety Report 8890377 (Version 1)
Quarter: 2012Q4

REPORT INFORMATION
  Report Type: 
  Country: US (occurrence: US)
  Receive Date: 20121107
  Receipt Date: 20121107
  Transmission Date: 20130627
  Serious: No
  Sender: FDA-Public Use
  Company Number: US-009507513-1210USA012320

PATIENT
  Sex: Male

DRUGS (1)
  1. PEG-INTRON [Suspect]
     Dosage: 80 mcg/0.5 ml
     Route: 058
     Dates: start: 201206, end: 20120912

REACTIONS (2)
  - Rash [Unknown]
  - Pruritus [Unknown]
